FAERS Safety Report 6929301-X (Version None)
Quarter: 2010Q3

REPORT INFORMATION
  Report Type: 
  Country: None (occurrence: None)
  Receive Date: 20100818
  Receipt Date: 20100809
  Transmission Date: 20110219
  Serious: Yes (Hospitalization)
  Sender: FDA-Public Use
  Company Number: FR-TEVA-244054ISR

PATIENT
  Sex: Male

DRUGS (2)
  1. CARBOPLATIN [Suspect]
     Indication: METASTATIC BRONCHIAL CARCINOMA
     Route: 042
     Dates: start: 20100707, end: 20100707
  2. PACLITAXEL [Suspect]
     Indication: METASTATIC BRONCHIAL CARCINOMA
     Route: 042
     Dates: start: 20100707, end: 20100707

REACTIONS (1)
  - COLITIS ISCHAEMIC [None]
